FAERS Safety Report 5514899-9 (Version None)
Quarter: 2007Q4

REPORT INFORMATION
  Report Type: 
  Country: None (occurrence: None)
  Receive Date: 20071113
  Receipt Date: 20060925
  Transmission Date: 20080405
  Serious: No
  Sender: FDA-Public Use
  Company Number: A0621294A

PATIENT
  Age: 87 Year
  Sex: Male

DRUGS (12)
  1. COREG [Suspect]
     Dosage: 12.5MG TWICE PER DAY
     Route: 048
     Dates: start: 20060601
  2. PLAVIX [Concomitant]
  3. LISINOPRIL [Concomitant]
  4. LEXAPRO [Concomitant]
  5. IRON [Concomitant]
  6. OMEPRAZOLE [Concomitant]
  7. BACTRIM [Concomitant]
  8. OXYBUTYNIN CHLORIDE [Concomitant]
  9. CALCIUM [Concomitant]
  10. SIMVASTATIN [Concomitant]
  11. ARICEPT [Concomitant]
  12. MULTI-VITAMIN [Concomitant]

REACTIONS (2)
  - DYSPNOEA [None]
  - PALPITATIONS [None]
